FAERS Safety Report 23766110 (Version 1)
Quarter: 2024Q2

REPORT INFORMATION
  Report Type: Report from Study
  Country: US (occurrence: US)
  Receive Date: 20240421
  Receipt Date: 20240421
  Transmission Date: 20240716
  Serious: Yes (Other)
  Sender: FDA-Public Use
  Company Number: US-ABBVIE-5727277

PATIENT
  Sex: Male

DRUGS (1)
  1. HUMIRA [Suspect]
     Active Substance: ADALIMUMAB
     Indication: Colitis ulcerative
     Route: 058
     Dates: start: 20210121

REACTIONS (3)
  - Acute cholecystitis necrotic [Not Recovered/Not Resolved]
  - Urinary retention [Not Recovered/Not Resolved]
  - Prostatic disorder [Recovering/Resolving]
